FAERS Safety Report 24085481 (Version 1)
Quarter: 2024Q3

REPORT INFORMATION
  Report Type: Spontaneous
  Country: US (occurrence: None)
  Receive Date: 20240712
  Receipt Date: 20240712
  Transmission Date: 20241017
  Serious: Yes (Other)
  Sender: Public
  Company Number: None

PATIENT
  Age: 81 Year
  Sex: Female
  Weight: 72 kg

DRUGS (16)
  1. REPATHA [Suspect]
     Active Substance: EVOLOCUMAB
     Indication: Hyperlipidaemia
     Dosage: 420 MG MONTHLY SUBCUTANEOUS ?
     Route: 058
     Dates: start: 20240109, end: 20240309
  2. TRAZODONE [Concomitant]
     Active Substance: TRAZODONE HYDROCHLORIDE
  3. NITROGLYCERIN [Concomitant]
     Active Substance: NITROGLYCERIN
  4. CLOPIDOGREL [Concomitant]
     Active Substance: CLOPIDOGREL BISULFATE
  5. ICOSAPENT ETHYL [Concomitant]
     Active Substance: ICOSAPENT ETHYL
  6. METOPROLOL [Concomitant]
     Active Substance: METOPROLOL
  7. HYDROCHLOROTHIAZIDE\LOSARTAN [Concomitant]
     Active Substance: HYDROCHLOROTHIAZIDE\LOSARTAN
  8. ROSUVASTATIN [Concomitant]
     Active Substance: ROSUVASTATIN
  9. FLUOXETINE [Concomitant]
     Active Substance: FLUOXETINE HYDROCHLORIDE
  10. LEVOTHYROXINE [Concomitant]
     Active Substance: LEVOTHYROXINE\LEVOTHYROXINE SODIUM
  11. ALENDRONATE [Concomitant]
     Active Substance: ALENDRONATE SODIUM
  12. ACETAMINOPHEN [Concomitant]
     Active Substance: ACETAMINOPHEN
  13. VITAMIN B12 [Concomitant]
     Active Substance: CYANOCOBALAMIN
  14. MAGNESIUM [Concomitant]
     Active Substance: MAGNESIUM
  15. TEARMAX [Concomitant]
  16. VITAMIN C [Concomitant]
     Active Substance: ASCORBIC ACID

REACTIONS (2)
  - Urticaria [None]
  - Therapy interrupted [None]

NARRATIVE: CASE EVENT DATE: 20240309
